FAERS Safety Report 10482099 (Version 1)
Quarter: 2014Q3

REPORT INFORMATION
  Report Type: Spontaneous
  Country: US (occurrence: US)
  Receive Date: 20140929
  Receipt Date: 20140929
  Transmission Date: 20150326
  Serious: Yes (Hospitalization, Other)
  Sender: FDA-Public Use
  Company Number: US-WATSON-2014-20724

PATIENT
  Age: 65 Year
  Sex: Male
  Weight: 66 kg

DRUGS (4)
  1. LUPRON [Suspect]
     Active Substance: LEUPROLIDE ACETATE
     Indication: PROSTATE CANCER
     Dosage: 30 MG INJECTION Q4 MONTHS
     Route: 065
     Dates: start: 201303, end: 201312
  2. FINASTERIDE. [Concomitant]
     Active Substance: FINASTERIDE
     Indication: PRODUCT USED FOR UNKNOWN INDICATION
     Dosage: UNK, UNKNOWN
     Route: 065
  3. TRELSTAR [Suspect]
     Active Substance: TRIPTORELIN PAMOATE
     Indication: PROSTATE CANCER
     Dosage: UNK, UNKNOWN
     Route: 065
     Dates: start: 201404
  4. FLOMAX [Concomitant]
     Active Substance: TAMSULOSIN HYDROCHLORIDE
     Indication: PRODUCT USED FOR UNKNOWN INDICATION
     Dosage: UNK, UNKNOWN
     Route: 065

REACTIONS (4)
  - Testicular swelling [Recovered/Resolved]
  - Testicular atrophy [Recovered/Resolved]
  - Scrotal abscess [Recovered/Resolved]
  - Wound drainage [Recovered/Resolved]

NARRATIVE: CASE EVENT DATE: 201404
